FAERS Safety Report 7900323-5 (Version None)
Quarter: 2011Q4

REPORT INFORMATION
  Report Type: 
  Country: None (occurrence: None)
  Receive Date: 20111108
  Receipt Date: 20111031
  Transmission Date: 20120403
  Serious: Yes (Death)
  Sender: FDA-Public Use
  Company Number: US-CELGENEUS-163-21880-11102081

PATIENT
  Sex: Female

DRUGS (9)
  1. DILTIAZEM HCL CR [Concomitant]
     Route: 065
  2. FUROSEMIDE [Concomitant]
     Route: 065
  3. SIMVASTATIN [Concomitant]
     Route: 065
  4. VITAMIN B COMPLEX CAP [Concomitant]
     Dosage: 100
     Route: 065
  5. VITAMIN B-12 [Concomitant]
     Route: 065
  6. REVLIMID [Suspect]
     Indication: MYELODYSPLASTIC SYNDROME
     Dosage: 5 MILLIGRAM
     Route: 048
     Dates: start: 20110907
  7. POTASSIUM ACETATE [Concomitant]
     Route: 065
  8. FISH OIL [Concomitant]
     Route: 065
  9. CALCIUM [Concomitant]
     Dosage: 1200
     Route: 065

REACTIONS (1)
  - DEATH [None]
